FAERS Safety Report 5131213-1 (Version None)
Quarter: 2006Q4

REPORT INFORMATION
  Report Type: 
  Country: None (occurrence: None)
  Receive Date: 20061020
  Receipt Date: 20061010
  Transmission Date: 20070319
  Serious: Yes (Hospitalization)
  Sender: FDA-Public Use
  Company Number: PHRM2006FR02822

PATIENT
  Age: 60 Year
  Sex: Female

DRUGS (3)
  1. VOLTARENE LP [Suspect]
     Indication: JOINT EFFUSION
     Dosage: 75 MG, BID
     Route: 048
     Dates: start: 20060801
  2. NEURONTIN [Concomitant]
     Dosage: 1000 MG/DAY
     Route: 048
  3. LEVOTHYROXINE SODIUM [Concomitant]
     Route: 048

REACTIONS (2)
  - CONVULSION [None]
  - EPILEPSY [None]
